FAERS Safety Report 6367671-4 (Version None)
Quarter: 2009Q3

REPORT INFORMATION
  Report Type: 
  Country: None (occurrence: None)
  Receive Date: 20090921
  Receipt Date: 20090910
  Transmission Date: 20100115
  Serious: Yes (Hospitalization)
  Sender: FDA-Public Use
  Company Number: US-AVENTIS-200918049US

PATIENT
  Sex: Male

DRUGS (3)
  1. LANTUS [Suspect]
     Route: 058
     Dates: start: 20090401
  2. LANTUS [Suspect]
     Route: 058
     Dates: start: 20090101
  3. NOVOLIN                            /00030501/ [Concomitant]
     Dosage: DOSE: SLIDING SCALE

REACTIONS (2)
  - BLOOD GLUCOSE DECREASED [None]
  - GALLBLADDER DISORDER [None]
